FAERS Safety Report 4403421-6 (Version None)
Quarter: 2004Q3

REPORT INFORMATION
  Report Type: 
  Country: None (occurrence: None)
  Receive Date: 20040720
  Receipt Date: 20040707
  Transmission Date: 20050211
  Serious: Yes (Hospitalization)
  Sender: FDA-Public Use
  Company Number: 2004222633US

PATIENT
  Age: 77 Year
  Sex: Female
  Weight: 61.2 kg

DRUGS (3)
  1. DETROL LA [Suspect]
     Indication: HYPERTONIC BLADDER
     Dosage: 2 MG, QD,
  2. LITHIUM (LITHIUM) [Concomitant]
  3. ZOCOR [Concomitant]

REACTIONS (4)
  - AMNESIA [None]
  - DRUG INEFFECTIVE [None]
  - URGE INCONTINENCE [None]
  - URINARY INCONTINENCE [None]
